FAERS Safety Report 5718148-8 (Version None)
Quarter: 2008Q2

REPORT INFORMATION
  Report Type: 
  Country: None (occurrence: None)
  Receive Date: 20080425
  Receipt Date: 20080416
  Transmission Date: 20081010
  Serious: Yes (Other)
  Sender: FDA-Public Use
  Company Number: US-SOLVAY-00208001093

PATIENT
  Sex: Male

DRUGS (1)
  1. ANDROGEL [Suspect]
     Indication: HYPOGONADISM MALE
     Dosage: DAILY DOSE:  UNKNOWN
     Route: 062

REACTIONS (1)
  - CEREBROVASCULAR ACCIDENT [None]
